FAERS Safety Report 5043257-9 (Version None)
Quarter: 2006Q3

REPORT INFORMATION
  Report Type: 
  Country: None (occurrence: None)
  Receive Date: 20060703
  Receipt Date: 20060703
  Transmission Date: 20061208
  Serious: Yes (Hospitalization)
  Sender: FDA-Public Use
  Company Number: None

PATIENT
  Age: 14 Year
  Sex: Female
  Weight: 61.2356 kg

DRUGS (2)
  1. ZYRTEC [Suspect]
     Indication: MULTIPLE ALLERGIES
     Dosage: ONE TABLET EVERY DAY PO
     Route: 048
     Dates: start: 20060518, end: 20060618
  2. MINICYCLINE  50 MG [Suspect]
     Indication: ACNE
     Dosage: ONE CAPSULE 2-3 TIMES A DAY PO
     Route: 048
     Dates: start: 20041115, end: 20060618

REACTIONS (3)
  - DIZZINESS [None]
  - ELECTROCARDIOGRAM QT PROLONGED [None]
  - LOSS OF CONSCIOUSNESS [None]
